FAERS Safety Report 9347689 (Version 1)
Quarter: 2013Q2

REPORT INFORMATION
  Report Type: Spontaneous
  Country: US (occurrence: US)
  Receive Date: 20130614
  Receipt Date: 20130614
  Transmission Date: 20140414
  Serious: Yes (Other)
  Sender: FDA-Public Use
  Company Number: US-ROCHE-1236451

PATIENT
  Age: 33 Year
  Sex: Male

DRUGS (2)
  1. VEMURAFENIB [Suspect]
     Indication: METASTATIC MALIGNANT MELANOMA
     Route: 065
     Dates: start: 20111228
  2. INTERLEUKIN-2 [Concomitant]
     Indication: METASTATIC MALIGNANT MELANOMA
     Route: 040
     Dates: start: 201208

REACTIONS (10)
  - Melanocytic naevus [Unknown]
  - Hyperkeratosis [Recovered/Resolved]
  - Hyperkeratosis [Recovered/Resolved]
  - Keratosis pilaris [Recovering/Resolving]
  - Dry skin [Unknown]
  - Arthralgia [Unknown]
  - Macule [Unknown]
  - Photosensitivity reaction [Recovering/Resolving]
  - Dermatitis acneiform [Recovering/Resolving]
  - Skin erosion [Unknown]
